FAERS Safety Report 18976465 (Version 1)
Quarter: 2021Q1

REPORT INFORMATION
  Report Type: Other
  Country: DE (occurrence: DE)
  Receive Date: 20210306
  Receipt Date: 20210306
  Transmission Date: 20210420
  Serious: Yes (Hospitalization)
  Sender: FDA-Public Use
  Company Number: DE-MACLEODS PHARMA UK LTD-MAC2021030339

PATIENT

DRUGS (4)
  1. ARIPIPRAZOLE. [Suspect]
     Active Substance: ARIPIPRAZOLE
     Indication: PSYCHOTIC DISORDER
     Dosage: 2.5 MILLIGRAM, QD EVERY DAYS
     Route: 048
     Dates: start: 201808, end: 20190605
  2. OPIPRAMOL [Suspect]
     Active Substance: OPIPRAMOL
     Dosage: 450 MG MILLGRAM(S) EVERY TOTAL
     Route: 048
     Dates: start: 20190605, end: 20190605
  3. OPIPRAMOL [Suspect]
     Active Substance: OPIPRAMOL
     Indication: DEPRESSION
     Dosage: 112.5 MG MILLGRAM (S) EVERY DAYS
     Route: 048
     Dates: start: 201808, end: 20190605
  4. ARIPIPRAZOLE. [Suspect]
     Active Substance: ARIPIPRAZOLE
     Dosage: 5 MG MILLGRAM(S) EVERY TOTAL
     Route: 048
     Dates: start: 20190605, end: 20190605

REACTIONS (2)
  - Suicide attempt [Recovered/Resolved]
  - Intentional overdose [Recovered/Resolved]

NARRATIVE: CASE EVENT DATE: 20190605
